FAERS Safety Report 7922809-X (Version None)
Quarter: 2011Q4

REPORT INFORMATION
  Report Type: 
  Country: None (occurrence: None)
  Receive Date: 20111117
  Receipt Date: 20110125
  Transmission Date: 20120403
  Serious: No
  Sender: FDA-Public Use
  Company Number: US-AMGEN-USASP2011004561

PATIENT
  Age: 71 Year
  Sex: Female

DRUGS (2)
  1. ENBREL [Suspect]
     Indication: RHEUMATOID ARTHRITIS
     Dates: start: 20110111
  2. AZULFIDINE [Concomitant]

REACTIONS (3)
  - IMPAIRED HEALING [None]
  - ORAL DISORDER [None]
  - TONGUE COATED [None]
